FAERS Safety Report 9549957 (Version 1)
Quarter: 2013Q3

REPORT INFORMATION
  Report Type: Spontaneous
  Country: US (occurrence: US)
  Receive Date: 20130924
  Receipt Date: 20130924
  Transmission Date: 20140515
  Serious: Yes (Other)
  Sender: FDA-Public Use
  Company Number: US-UCBSA-097934

PATIENT
  Sex: 0

DRUGS (2)
  1. CIMZIA [Suspect]
     Dosage: UNKNOWN
  2. 6 MERCAPTOPURINE [Concomitant]
     Dosage: UNKNOWN

REACTIONS (2)
  - Enterocutaneous fistula [Unknown]
  - Drug ineffective [Unknown]
